FAERS Safety Report 10378298 (Version 2)
Quarter: 2015Q4

REPORT INFORMATION
  Report Type: Spontaneous
  Country: US (occurrence: US)
  Receive Date: 20140812
  Receipt Date: 20151016
  Transmission Date: 20160304
  Serious: Yes (Hospitalization)
  Sender: FDA-Public Use
  Company Number: US-PFIZER INC-2014223064

PATIENT
  Age: 66 Year
  Sex: Male
  Weight: 118 kg

DRUGS (3)
  1. RAPAMUNE [Suspect]
     Active Substance: SIROLIMUS
     Dosage: 1 MG, 1X/DAY
     Route: 048
     Dates: start: 201310, end: 2015
  2. RAPAMUNE [Suspect]
     Active Substance: SIROLIMUS
     Indication: CATHETERISATION CARDIAC
     Dosage: 1 MG, UNK
  3. RAPAMUNE [Suspect]
     Active Substance: SIROLIMUS
     Indication: HEART TRANSPLANT REJECTION
     Dosage: 0.5 MG, UNK

REACTIONS (7)
  - Influenza [Recovered/Resolved]
  - Immunosuppressant drug level increased [Unknown]
  - Blood cholesterol increased [Unknown]
  - Blood triglycerides increased [Unknown]
  - Hypertension [Recovered/Resolved]
  - Immune system disorder [Recovered/Resolved]
  - Product use issue [Not Recovered/Not Resolved]

NARRATIVE: CASE EVENT DATE: 201408
